FAERS Safety Report 22257443 (Version 1)
Quarter: 2023Q2

REPORT INFORMATION
  Report Type: Spontaneous
  Country: CN (occurrence: CN)
  Receive Date: 20230427
  Receipt Date: 20230427
  Transmission Date: 20230722
  Serious: Yes (Other)
  Sender: FDA-Public Use
  Company Number: CN-009507513-2304CHN008630

PATIENT
  Age: 57 Year
  Sex: Female
  Weight: 68 kg

DRUGS (3)
  1. IMIPENEM AND CILASTATIN [Suspect]
     Active Substance: CILASTATIN SODIUM\IMIPENEM
     Dosage: 1 G, EVERY 8 HOURS FOR 8 DAYS FROM DAY 9-16; FORMULATION REPORTED AS POWDER FOR INJECTION
     Route: 041
     Dates: start: 202203, end: 202203
  2. CEFTIZOXIME SODIUM [Suspect]
     Active Substance: CEFTIZOXIME SODIUM
     Indication: Anti-infective therapy
     Dosage: 1.5 G, EVERY 8 HOURS, FROM DAY 7-9
     Route: 041
     Dates: start: 202203, end: 202203
  3. OMEPRAZOLE [Suspect]
     Active Substance: OMEPRAZOLE
     Indication: Antacid therapy
     Dosage: 40 MG, ONCE A DAY FROM DAY 2-16
     Route: 041
     Dates: start: 202203, end: 202203

REACTIONS (2)
  - Clostridium difficile infection [Recovered/Resolved]
  - Clostridium difficile colitis [Recovered/Resolved]
